FAERS Safety Report 6526590-0 (Version None)
Quarter: 2010Q1

REPORT INFORMATION
  Report Type: 
  Country: None (occurrence: None)
  Receive Date: 20100105
  Receipt Date: 20091228
  Transmission Date: 20100710
  Serious: Yes (Other)
  Sender: FDA-Public Use
  Company Number: US-ROCHE-626780

PATIENT
  Sex: Female
  Weight: 76.7 kg

DRUGS (8)
  1. XELODA [Suspect]
     Route: 048
     Dates: start: 20090313, end: 20090810
  2. ASPIRIN [Concomitant]
  3. COZAAR [Concomitant]
  4. IRON [Concomitant]
  5. MG OXIDE [Concomitant]
  6. METFORMIN [Concomitant]
  7. PROTONIX [Concomitant]
  8. TOPROL-XL [Concomitant]

REACTIONS (9)
  - DISEASE RECURRENCE [None]
  - DRY SKIN [None]
  - HAEMORRHAGE SUBCUTANEOUS [None]
  - MALIGNANT NEOPLASM PROGRESSION [None]
  - NAIL DISCOLOURATION [None]
  - NAIL INFECTION [None]
  - ONYCHOMADESIS [None]
  - RASH MACULAR [None]
  - TUMOUR MARKER INCREASED [None]
